FAERS Safety Report 6123207-4 (Version None)
Quarter: 2009Q1

REPORT INFORMATION
  Report Type: 
  Country: None (occurrence: None)
  Receive Date: 20090318
  Receipt Date: 20090309
  Transmission Date: 20090719
  Serious: Yes (Hospitalization)
  Sender: FDA-Public Use
  Company Number: NL-ABBOTT-09P-114-0559768-00

PATIENT
  Sex: Female

DRUGS (5)
  1. HUMIRA [Suspect]
     Indication: RHEUMATOID ARTHRITIS
     Route: 058
     Dates: start: 20050708, end: 20050913
  2. HUMIRA [Suspect]
     Route: 058
     Dates: start: 20060123
  3. METHOTREXATE [Concomitant]
     Indication: DRUG USE FOR UNKNOWN INDICATION
     Route: 048
     Dates: start: 20040217
  4. MOVICOX [Concomitant]
     Indication: DRUG USE FOR UNKNOWN INDICATION
     Dosage: FREQUENCY NOT SPECIFIED
     Route: 048
     Dates: start: 20040615, end: 20060314
  5. FOLIC ACID [Concomitant]
     Indication: DRUG USE FOR UNKNOWN INDICATION
     Route: 048
     Dates: start: 20040217

REACTIONS (4)
  - CUTANEOUS SARCOIDOSIS [None]
  - ERYTHEMA NODOSUM [None]
  - PNEUMONIA [None]
  - PULMONARY SARCOIDOSIS [None]
